FAERS Safety Report 5272872-2 (Version None)
Quarter: 2007Q1

REPORT INFORMATION
  Report Type: 
  Country: None (occurrence: None)
  Receive Date: 20070322
  Receipt Date: 20070321
  Transmission Date: 20070707
  Serious: Yes (Other)
  Sender: FDA-Public Use
  Company Number: US-BRISTOL-MYERS SQUIBB COMPANY-13551254

PATIENT
  Age: 18 Year
  Sex: Female

DRUGS (7)
  1. VINCRISTINE SULFATE [Suspect]
     Indication: PRIMITIVE NEUROECTODERMAL TUMOUR
  2. CYCLOPHOSPHAMIDE [Suspect]
     Indication: PRIMITIVE NEUROECTODERMAL TUMOUR
     Route: 042
  3. CARBOPLATIN [Suspect]
     Indication: PRIMITIVE NEUROECTODERMAL TUMOUR
     Route: 042
  4. ETOPOSIDE [Suspect]
     Indication: PRIMITIVE NEUROECTODERMAL TUMOUR
  5. THIOTEPA [Concomitant]
     Indication: PRIMITIVE NEUROECTODERMAL TUMOUR
  6. GRANULOCYTE CSF [Concomitant]
     Indication: PRIMITIVE NEUROECTODERMAL TUMOUR
  7. RADIOTHERAPY [Concomitant]
     Indication: PRIMITIVE NEUROECTODERMAL TUMOUR

REACTIONS (2)
  - HERPES ZOSTER [None]
  - MYELITIS [None]
